FAERS Safety Report 6417061-0 (Version None)
Quarter: 2009Q4

REPORT INFORMATION
  Report Type: 
  Country: None (occurrence: None)
  Receive Date: 20091028
  Receipt Date: 20091019
  Transmission Date: 20100525
  Serious: Yes (Hospitalization)
  Sender: FDA-Public Use
  Company Number: US-BIOGENIDEC-2009BI033696

PATIENT
  Age: 53 Year
  Sex: Female

DRUGS (1)
  1. TYSABRI [Suspect]
     Indication: MULTIPLE SCLEROSIS
     Route: 042
     Dates: start: 20090216

REACTIONS (5)
  - CATARACT [None]
  - DRUG INEFFECTIVE [None]
  - FATIGUE [None]
  - OPTIC NEURITIS [None]
  - SPINAL CORD COMPRESSION [None]
